FAERS Safety Report 6715773-2 (Version None)
Quarter: 2010Q2

REPORT INFORMATION
  Report Type: 
  Country: None (occurrence: None)
  Receive Date: 20100506
  Receipt Date: 20100506
  Transmission Date: 20101027
  Serious: No
  Sender: FDA-Public Use
  Company Number: None

PATIENT
  Age: 57 Year
  Sex: Female
  Weight: 90.7194 kg

DRUGS (2)
  1. MAJOR SLEEP TABS  25 MG. QXH [Suspect]
     Indication: INSOMNIA
     Dosage: 2 TABS 3-4 TIMES A WEEK
     Dates: start: 20080110
  2. LOZENGES BENZOCAINE [Suspect]
     Indication: SLEEP DISORDER THERAPY
     Dosage: 3 LOZENGES EVERY DAY IN FEBRUARY 2010
     Dates: start: 20080110

REACTIONS (4)
  - CHROMATOPSIA [None]
  - DIZZINESS [None]
  - THIRST [None]
  - URINARY INCONTINENCE [None]
